FAERS Safety Report 9804268 (Version 1)
Quarter: 2014Q1

REPORT INFORMATION
  Report Type: Spontaneous
  Country: US (occurrence: US)
  Receive Date: 20140108
  Receipt Date: 20140108
  Transmission Date: 20141002
  Serious: Yes (Hospitalization)
  Sender: FDA-Public Use
  Company Number: US-B.I. PHARMACEUTICALS,INC./RIDGEFIELD-2014-BI-00509BP

PATIENT
  Age: 79 Year
  Sex: Male
  Weight: 75 kg

DRUGS (4)
  1. PRADAXA [Suspect]
     Indication: ATRIAL FIBRILLATION
     Dosage: 300 MG
     Route: 048
     Dates: start: 2010
  2. RYTHMOL [Concomitant]
     Dosage: 450 MG
     Route: 048
  3. CRESTOR [Concomitant]
     Indication: BLOOD CHOLESTEROL INCREASED
     Dosage: 10 MG
     Route: 048
  4. CARDIZEM [Concomitant]
     Dosage: 120 MG
     Route: 048

REACTIONS (2)
  - Arthritis [Recovered/Resolved]
  - Abdominal pain upper [Not Recovered/Not Resolved]
